FAERS Safety Report 5024055-9 (Version None)
Quarter: 2006Q2

REPORT INFORMATION
  Report Type: 
  Country: None (occurrence: None)
  Receive Date: 20060612
  Receipt Date: 20060602
  Transmission Date: 20061013
  Serious: Yes (Hospitalization)
  Sender: FDA-Public Use
  Company Number: JP-MERCK-0606USA01648

PATIENT
  Age: 73 Year
  Sex: Female

DRUGS (15)
  1. PEPCID RPD [Suspect]
     Route: 048
     Dates: start: 20050629, end: 20060531
  2. BLOPRESS [Suspect]
     Route: 048
     Dates: start: 20050629, end: 20060531
  3. LIPITOR [Concomitant]
     Route: 048
     Dates: start: 20050629, end: 20060531
  4. MAGNESIUM OXIDE [Concomitant]
     Route: 048
     Dates: start: 20050629, end: 20060531
  5. BEPRIDIL HYDROCHLORIDE [Concomitant]
     Route: 048
     Dates: start: 20050629, end: 20060531
  6. URSO [Concomitant]
     Route: 048
     Dates: start: 20050819, end: 20060531
  7. GLYCYRON [Concomitant]
     Route: 048
     Dates: start: 20050629, end: 20060531
  8. SENNOSIDES [Concomitant]
     Route: 048
     Dates: start: 20050629, end: 20060531
  9. DEPAKENE [Concomitant]
     Route: 048
     Dates: start: 20050629, end: 20060531
  10. EVISTA [Concomitant]
     Route: 048
     Dates: start: 20050629, end: 20060531
  11. BUP-4 [Concomitant]
     Route: 048
     Dates: start: 20050629, end: 20060531
  12. ASPIRIN [Concomitant]
     Route: 048
     Dates: start: 20050629, end: 20060531
  13. MUCOSTA [Concomitant]
     Route: 048
     Dates: start: 20050629, end: 20060531
  14. ALFACALCIDOL [Concomitant]
     Route: 048
     Dates: start: 20050629, end: 20060531
  15. FRANDOL [Concomitant]
     Route: 065
     Dates: start: 20050629, end: 20060531

REACTIONS (1)
  - INTERSTITIAL LUNG DISEASE [None]
